FAERS Safety Report 11152180 (Version 2)
Quarter: 2015Q2

REPORT INFORMATION
  Report Type: Spontaneous
  Country: JP (occurrence: JP)
  Receive Date: 20150601
  Receipt Date: 20150616
  Transmission Date: 20150821
  Serious: Yes (Hospitalization)
  Sender: FDA-Public Use
  Company Number: JP-PFIZER INC-2015181873

PATIENT
  Sex: Male

DRUGS (1)
  1. FLUCAM [Suspect]
     Active Substance: AMPIROXICAM
     Indication: BACK PAIN
     Route: 048

REACTIONS (1)
  - Varicose vein [Unknown]
